FAERS Safety Report 22262744 (Version 5)
Quarter: 2023Q2

REPORT INFORMATION
  Report Type: Report from Study
  Country: US (occurrence: US)
  Receive Date: 20230428
  Receipt Date: 20230626
  Transmission Date: 20230722
  Serious: Yes (Other)
  Sender: FDA-Public Use
  Company Number: US-ABBVIE-4742999

PATIENT
  Age: 61 Year
  Sex: Male

DRUGS (4)
  1. IMBRUVICA [Suspect]
     Active Substance: IBRUTINIB
     Indication: Chronic lymphocytic leukaemia
     Route: 048
     Dates: start: 20181228
  2. IMBRUVICA [Suspect]
     Active Substance: IBRUTINIB
     Indication: Chronic lymphocytic leukaemia
     Route: 048
  3. IMBRUVICA [Suspect]
     Active Substance: IBRUTINIB
     Indication: Chronic lymphocytic leukaemia
     Route: 048
     Dates: start: 20181228
  4. IMBRUVICA [Suspect]
     Active Substance: IBRUTINIB
     Indication: Chronic lymphocytic leukaemia
     Route: 048
     Dates: start: 2018, end: 2018

REACTIONS (14)
  - Colectomy [Recovered/Resolved]
  - Incisional hernia [Not Recovered/Not Resolved]
  - Toothache [Unknown]
  - Blood iron decreased [Recovered/Resolved]
  - Blood magnesium decreased [Recovered/Resolved]
  - Depression [Unknown]
  - Blood magnesium decreased [Unknown]
  - Weight increased [Unknown]
  - Blood iron decreased [Unknown]
  - Diabetes mellitus [Unknown]
  - Influenza [Unknown]
  - Exposure to allergen [Unknown]
  - Oropharyngeal pain [Unknown]
  - Sinus disorder [Unknown]

NARRATIVE: CASE EVENT DATE: 20220101
